FAERS Safety Report 7333279-7 (Version None)
Quarter: 2011Q1

REPORT INFORMATION
  Report Type: 
  Country: None (occurrence: None)
  Receive Date: 20110304
  Receipt Date: 20110221
  Transmission Date: 20110831
  Serious: Yes (Hospitalization, Other)
  Sender: FDA-Public Use
  Company Number: DE-ELI_LILLY_AND_COMPANY-DE201012000436

PATIENT
  Age: 53 Year
  Sex: Female

DRUGS (1)
  1. ZYPREXA [Suspect]
     Indication: PSYCHOTIC DISORDER
     Dosage: UNK, UNK
     Route: 048
     Dates: start: 20101102, end: 20101102

REACTIONS (3)
  - INTENTIONAL OVERDOSE [None]
  - HYPONATRAEMIA [None]
  - SUICIDE ATTEMPT [None]
